FAERS Safety Report 11849740 (Version 1)
Quarter: 2015Q4

REPORT INFORMATION
  Report Type: Spontaneous
  Country: FR (occurrence: FR)
  Receive Date: 20151218
  Receipt Date: 20151218
  Transmission Date: 20160305
  Serious: Yes (Other)
  Sender: FDA-Public Use
  Company Number: FR-ACTELION-A-CH2015-128479

PATIENT
  Age: 37 Year
  Sex: Male

DRUGS (10)
  1. TRIATEC [Concomitant]
     Active Substance: RAMIPRIL
  2. ACTISKENAN [Concomitant]
     Active Substance: MORPHINE SULFATE
  3. TRACLEER [Suspect]
     Active Substance: BOSENTAN
     Indication: PULMONARY ARTERIAL HYPERTENSION
     Dosage: 125 MG, BID
     Route: 048
     Dates: start: 200902
  4. EUPANTOL [Concomitant]
     Active Substance: PANTOPRAZOLE SODIUM
  5. TAHOR [Concomitant]
     Active Substance: ATORVASTATIN CALCIUM
  6. NOCTAMIDE [Concomitant]
     Active Substance: LORMETAZEPAM
  7. REMODULIN [Concomitant]
     Active Substance: TREPROSTINIL
     Dosage: UNK
     Dates: start: 201101
  8. EPITOMAX [Concomitant]
     Active Substance: TOPIRAMATE
  9. PREVISCAN [Concomitant]
     Active Substance: FLUINDIONE
  10. REVATIO [Concomitant]
     Active Substance: SILDENAFIL CITRATE
     Dosage: UNK
     Dates: start: 201005

REACTIONS (4)
  - Arthralgia [Not Recovered/Not Resolved]
  - Meniscal degeneration [Not Recovered/Not Resolved]
  - Osteonecrosis [Not Recovered/Not Resolved]
  - Bone infarction [Not Recovered/Not Resolved]

NARRATIVE: CASE EVENT DATE: 201206
